FAERS Safety Report 24529414 (Version 2)
Quarter: 2024Q4

REPORT INFORMATION
  Report Type: Report from Study
  Country: US (occurrence: US)
  Receive Date: 20241021
  Receipt Date: 20241028
  Transmission Date: 20250114
  Serious: Yes (Hospitalization)
  Sender: ABBVIE
  Company Number: US-ABBVIE-5970288

PATIENT
  Sex: Female
  Weight: 43.544 kg

DRUGS (4)
  1. SKYRIZI [Suspect]
     Active Substance: RISANKIZUMAB-RZAA
     Indication: Colitis ulcerative
     Route: 042
     Dates: start: 20240815, end: 20241011
  2. ENTRESTO [Concomitant]
     Active Substance: SACUBITRIL\VALSARTAN
     Indication: Cardiac disorder
  3. ELIQUIS [Concomitant]
     Active Substance: APIXABAN
     Indication: Thrombosis prophylaxis
  4. FLAGYL [Suspect]
     Active Substance: METRONIDAZOLE\METRONIDAZOLE HYDROCHLORIDE
     Indication: Diarrhoea
     Route: 048
     Dates: start: 202409, end: 202409

REACTIONS (8)
  - Colitis ulcerative [Recovered/Resolved]
  - Weight decreased [Recovered/Resolved]
  - Diarrhoea [Recovered/Resolved]
  - Illness [Unknown]
  - Feeding disorder [Recovered/Resolved]
  - Dehydration [Recovered/Resolved]
  - Vomiting [Recovering/Resolving]
  - Product dispensing error [Unknown]

NARRATIVE: CASE EVENT DATE: 20240101
